FAERS Safety Report 9035069 (Version 1)
Quarter: 2013Q1

REPORT INFORMATION
  Report Type: Report from Study
  Country: US (occurrence: US)
  Receive Date: 20130129
  Receipt Date: 20130129
  Transmission Date: 20140127
  Serious: No
  Sender: FDA-Public Use
  Company Number: US-ABBOTT-12P-163-0894917-00

PATIENT
  Age: 43 Year
  Sex: Male

DRUGS (8)
  1. HUMIRA 40 MG/0.8 ML PEN [Suspect]
     Indication: CROHN^S DISEASE
     Dates: start: 20111220, end: 20111220
  2. HUMIRA 40 MG/0.8 ML PEN [Suspect]
     Dates: start: 20120103, end: 20120103
  3. HUMIRA 40 MG/0.8 ML PEN [Suspect]
     Dates: start: 20120117
  4. PENTASA [Concomitant]
     Indication: PRODUCT USED FOR UNKNOWN INDICATION
     Route: 048
  5. CENTRUM [Concomitant]
     Indication: VITAMIN SUPPLEMENTATION
  6. C-TABS [Concomitant]
     Indication: SUPPLEMENTATION THERAPY
  7. B-12 [Concomitant]
     Indication: VITAMIN SUPPLEMENTATION
  8. HERBAL TEA WITH ROSE HIPS [Concomitant]
     Indication: PHYTOTHERAPY

REACTIONS (1)
  - Feeling abnormal [Recovering/Resolving]
